FAERS Safety Report 7862891-1 (Version None)
Quarter: 2011Q4

REPORT INFORMATION
  Report Type: 
  Country: None (occurrence: None)
  Receive Date: 20111026
  Receipt Date: 20111010
  Transmission Date: 20120403
  Serious: Yes (Hospitalization, Congenital Anomaly)
  Sender: FDA-Public Use
  Company Number: 1000024660

PATIENT

DRUGS (3)
  1. LEXATIN (BROMAZEPAM) [Suspect]
     Dosage: 3 MG (3 MG, 1 IN 1 D), TRANSPLACENTAL; 1.5 (1.5 MG, 1 IN 1 D), TRANSPLACENTAL
     Route: 064
     Dates: start: 20101013, end: 20101124
  2. LEXATIN (BROMAZEPAM) [Suspect]
     Dosage: 3 MG (3 MG, 1 IN 1 D), TRANSPLACENTAL; 1.5 (1.5 MG, 1 IN 1 D), TRANSPLACENTAL
     Route: 064
     Dates: start: 20101124, end: 20110209
  3. ESCITALOPRAM [Suspect]
     Dosage: SEE IMAGE: TRANSPLACENTAL
     Route: 064
     Dates: start: 20100630, end: 20100918

REACTIONS (9)
  - HYPOPARATHYROIDISM [None]
  - ATRIAL SEPTAL DEFECT [None]
  - PREMATURE BABY [None]
  - HYPOCALCAEMIA [None]
  - ANAEMIA [None]
  - CAESAREAN SECTION [None]
  - FOETAL DISTRESS SYNDROME [None]
  - MACROCEPHALY [None]
  - FOETAL EXPOSURE DURING PREGNANCY [None]
